FAERS Safety Report 9069950 (Version 1)
Quarter: 2013Q1

REPORT INFORMATION
  Report Type: Spontaneous
  Country: US (occurrence: US)
  Receive Date: 20130131
  Receipt Date: 20130131
  Transmission Date: 20140127
  Serious: No
  Sender: FDA-Public Use
  Company Number: US-ABBOTT-12P-163-1006742-00

PATIENT
  Sex: 0

DRUGS (1)
  1. HUMIRA [Suspect]
     Indication: PRODUCT USED FOR UNKNOWN INDICATION

REACTIONS (14)
  - Hepatic steatosis [Unknown]
  - Blood urine present [Unknown]
  - Nasopharyngitis [Unknown]
  - Rhinorrhoea [Unknown]
  - C-reactive protein increased [Unknown]
  - Diarrhoea [Unknown]
  - Arthralgia [Unknown]
  - Pain [Unknown]
  - Pain [Unknown]
  - Swelling [Unknown]
  - Muscle twitching [Unknown]
  - Phantom pain [Unknown]
  - Streptococcal infection [Unknown]
  - Pain [Unknown]
